FAERS Safety Report 26045561 (Version 1)
Quarter: 2025Q4

REPORT INFORMATION
  Report Type: Spontaneous
  Country: JO (occurrence: JO)
  Receive Date: 20251114
  Receipt Date: 20251114
  Transmission Date: 20260117
  Serious: Yes (Disabling, Other)
  Sender: NOVARTIS
  Company Number: JO-002147023-NVSC2025JO148453

PATIENT
  Age: 84 Year
  Sex: Male

DRUGS (1)
  1. BEOVU [Suspect]
     Active Substance: BROLUCIZUMAB-DBLL
     Indication: Neovascular age-related macular degeneration
     Dosage: UNK
     Route: 031

REACTIONS (3)
  - Retinal occlusive vasculitis [Recovering/Resolving]
  - Vitritis [Recovering/Resolving]
  - Visual impairment [Unknown]
